FAERS Safety Report 8394934-3 (Version None)
Quarter: 2012Q2

REPORT INFORMATION
  Report Type: 
  Country: None (occurrence: None)
  Receive Date: 20120530
  Receipt Date: 20110913
  Transmission Date: 20120825
  Serious: No
  Sender: FDA-Public Use
  Company Number: US-GLAXOSMITHKLINE-A0945200A

PATIENT
  Age: 53 Year
  Sex: Female
  Weight: 73 kg

DRUGS (13)
  1. VITAMIN D [Concomitant]
     Dosage: 1000UNIT PER DAY
  2. WARFARIN SODIUM [Concomitant]
  3. ALENDRONATE SODIUM [Concomitant]
     Dosage: 70MG WEEKLY
  4. FLOLAN [Suspect]
     Indication: PULMONARY ARTERIAL HYPERTENSION
     Dosage: 46NGKM UNKNOWN
     Route: 065
     Dates: start: 20060712
  5. POTASSIUM CHLORIDE [Concomitant]
     Dosage: 50MEQ PER DAY
  6. SYNTHROID [Concomitant]
     Dosage: 75MCG PER DAY
  7. CALCIUM [Concomitant]
     Dosage: 600MG PER DAY
  8. PERCOCET [Concomitant]
  9. FERROUS SULFATE TAB [Concomitant]
     Dosage: 325MG PER DAY
  10. LASIX [Concomitant]
     Dosage: 40MG TWICE PER DAY
  11. XANAX [Concomitant]
     Dosage: 1MG FOUR TIMES PER DAY
  12. ATROPINE + DIPHENOXYLATE [Concomitant]
  13. FENTANYL-100 [Concomitant]

REACTIONS (1)
  - PAIN IN EXTREMITY [None]
